FAERS Safety Report 7774478-X (Version None)
Quarter: 2011Q3

REPORT INFORMATION
  Report Type: 
  Country: None (occurrence: None)
  Receive Date: 20110923
  Receipt Date: 20110916
  Transmission Date: 20111222
  Serious: Yes (Hospitalization)
  Sender: FDA-Public Use
  Company Number: US-ROCHE-796346

PATIENT
  Sex: Male
  Weight: 77.1 kg

DRUGS (13)
  1. BEVACIZUMAB [Suspect]
     Indication: NON-SMALL CELL LUNG CANCER
     Route: 042
     Dates: start: 20101207, end: 20110725
  2. TERAZOSIN HCL [Concomitant]
     Dates: start: 20101112
  3. LEVOTHYROXINE SODIUM [Concomitant]
  4. PEMETREXED [Suspect]
     Indication: NON-SMALL CELL LUNG CANCER
     Route: 042
     Dates: start: 20101207, end: 20110725
  5. HYCODAN [Concomitant]
     Dosage: 5MG-1.5MG/5ML
  6. COSOPT [Concomitant]
     Dosage: 2% EYE DROP
     Dates: start: 20101112
  7. LEVOTHYROXINE SODIUM [Concomitant]
     Dates: start: 20101112
  8. TIMOLOL EYE DROPS [Concomitant]
     Dates: start: 20101112
  9. FOLIC ACID [Concomitant]
     Route: 048
     Dates: start: 20101222
  10. LASIX [Concomitant]
     Dates: start: 20110502
  11. LASIX [Concomitant]
  12. ALTACE [Concomitant]
  13. AMLODIPINE [Concomitant]
     Dates: start: 20101112

REACTIONS (2)
  - PLEURAL EFFUSION [None]
  - DYSPNOEA [None]
